FAERS Safety Report 8241551-1 (Version None)
Quarter: 2012Q1

REPORT INFORMATION
  Report Type: 
  Country: None (occurrence: None)
  Receive Date: 20120328
  Receipt Date: 20120130
  Transmission Date: 20120608
  Serious: No
  Sender: FDA-Public Use
  Company Number: US-COVIDIEN/TYCO HEALTHCARE/MALLINCKRODT-T201200555

PATIENT
  Sex: Male
  Weight: 122.45 kg

DRUGS (2)
  1. METHADOSE [Suspect]
     Indication: DRUG ABUSE
     Dosage: 417 MG, QD
     Route: 048
  2. ZANTAC [Concomitant]
     Indication: ABDOMINAL DISCOMFORT
     Dosage: 150 MG, BID
     Route: 048

REACTIONS (2)
  - PANIC ATTACK [None]
  - ANXIETY [None]
